FAERS Safety Report 5500388-4 (Version None)
Quarter: 2007Q4

REPORT INFORMATION
  Report Type: 
  Country: None (occurrence: None)
  Receive Date: 20071029
  Receipt Date: 20071015
  Transmission Date: 20080405
  Serious: Yes (Other)
  Sender: FDA-Public Use
  Company Number: US-ROCHE-524981

PATIENT
  Age: 73 Year
  Sex: Female

DRUGS (9)
  1. BONIVA [Suspect]
     Indication: OSTEOPENIA
     Route: 065
     Dates: start: 20070201
  2. BONIVA [Suspect]
     Route: 065
     Dates: start: 20070701
  3. UNSPECIFIED MEDICATION [Concomitant]
     Route: 065
  4. UNSPECIFIED MEDICATION [Concomitant]
  5. UNSPECIFIED MEDICATION [Concomitant]
  6. CENTRUM [Concomitant]
     Indication: VITAMIN SUPPLEMENTATION
  7. ACETYLSALICYLIC ACID SRT [Concomitant]
  8. OSCAL [Concomitant]
  9. OMEGA [Concomitant]

REACTIONS (2)
  - BONE DISORDER [None]
  - PAIN IN JAW [None]
